FAERS Safety Report 26011371 (Version 1)
Quarter: 2025Q4

REPORT INFORMATION
  Report Type: Spontaneous
  Country: US (occurrence: US)
  Receive Date: 20251107
  Receipt Date: 20251107
  Transmission Date: 20260118
  Serious: No
  Sender: MYLAN
  Company Number: US-MYLANLABS-2025M1091800

PATIENT
  Sex: Female
  Weight: 71.67 kg

DRUGS (1)
  1. GLATIRAMER ACETATE [Suspect]
     Active Substance: GLATIRAMER ACETATE
     Indication: Multiple sclerosis
     Dosage: 40 MILLIGRAM, Q3D (ONCE EVERY 3 DAYS)
     Dates: start: 2025

REACTIONS (4)
  - Injection site reaction [Recovered/Resolved]
  - Feeling abnormal [Unknown]
  - Product prescribing issue [Unknown]
  - Liquid product physical issue [Unknown]

NARRATIVE: CASE EVENT DATE: 20250101
